FAERS Safety Report 10408488 (Version 2)
Quarter: 2014Q3

REPORT INFORMATION
  Report Type: Spontaneous
  Country: US (occurrence: US)
  Receive Date: 20140826
  Receipt Date: 20140930
  Transmission Date: 20150326
  Serious: No
  Sender: FDA-Public Use
  Company Number: US-B.I. PHARMACEUTICALS,INC./RIDGEFIELD-2014-BI-39231BP

PATIENT
  Age: 84 Year
  Sex: Male
  Weight: 84 kg

DRUGS (8)
  1. METOPROLOL [Concomitant]
     Active Substance: METOPROLOL
     Indication: CARDIAC DISORDER
     Dosage: 50 MCG
     Route: 048
  2. APRISO [Concomitant]
     Active Substance: MESALAMINE
     Indication: COLITIS
     Dosage: 1500 MG
     Route: 048
  3. OMEGA 3 [Concomitant]
     Active Substance: OMEGA-3 FATTY ACIDS
     Indication: PRODUCT USED FOR UNKNOWN INDICATION
     Route: 048
  4. SPIRIVA [Suspect]
     Active Substance: TIOTROPIUM BROMIDE MONOHYDRATE
     Indication: CHRONIC OBSTRUCTIVE PULMONARY DISEASE
     Dosage: 18 MCG
     Route: 055
     Dates: start: 20140817, end: 20140819
  5. SIMVASTATIN. [Concomitant]
     Active Substance: SIMVASTATIN
     Indication: BLOOD CHOLESTEROL INCREASED
     Dosage: 2 MG
     Route: 048
  6. LISINOPRIL. [Concomitant]
     Active Substance: LISINOPRIL
     Indication: HYPERTENSION
     Dosage: 2.5 MG
     Route: 048
  7. IMURAN [Concomitant]
     Active Substance: AZATHIOPRINE
     Indication: COLITIS
     Dosage: 150 MG
     Route: 048
  8. ASPIRIN. [Concomitant]
     Active Substance: ASPIRIN
     Indication: CARDIAC DISORDER
     Dosage: 81 MG
     Route: 048

REACTIONS (7)
  - Headache [Not Recovered/Not Resolved]
  - Herpes zoster [Unknown]
  - Skin burning sensation [Not Recovered/Not Resolved]
  - Ear swelling [Not Recovered/Not Resolved]
  - Blister [Not Recovered/Not Resolved]
  - Rash [Not Recovered/Not Resolved]
  - Pruritus [Not Recovered/Not Resolved]

NARRATIVE: CASE EVENT DATE: 20140817
